FAERS Safety Report 21858827 (Version 1)
Quarter: 2023Q1

REPORT INFORMATION
  Report Type: Spontaneous
  Country: US (occurrence: None)
  Receive Date: 20230112
  Receipt Date: 20230112
  Transmission Date: 20230418
  Serious: No
  Sender: FDA-Public Use
  Company Number: None

PATIENT
  Sex: Female
  Weight: 75.3 kg

DRUGS (16)
  1. CAPECITABINE [Suspect]
     Active Substance: CAPECITABINE
     Indication: Breast cancer
     Route: 048
  2. ASTRAGALUS [Concomitant]
  3. CURAMIN BCM [Concomitant]
  4. HAWTHORNE BERRY [Concomitant]
  5. HERCEPTIN [Concomitant]
     Active Substance: TRASTUZUMAB
  6. IMODIUM A-D [Concomitant]
     Active Substance: LOPERAMIDE HYDROCHLORIDE
  7. DIETARY SUPPLEMENT\HERBALS\MILK THISTLE [Concomitant]
     Active Substance: DIETARY SUPPLEMENT\HERBALS\MILK THISTLE
  8. OIL OF OREGANO [Concomitant]
  9. OMEGA-3 FISH OIL [Concomitant]
  10. PASSION FLOWER-VALERIAN [Concomitant]
  11. REISHI [Concomitant]
     Active Substance: REISHI
  12. TAMOXIFEN CITRATE [Concomitant]
     Active Substance: TAMOXIFEN CITRATE
  13. TUKYSA [Concomitant]
     Active Substance: TUCATINIB
  14. TURKEY TAIL MUSHROOMS [Concomitant]
  15. VITAMIN D3 [Concomitant]
     Active Substance: CHOLECALCIFEROL
  16. ZINC [Concomitant]
     Active Substance: ZINC

REACTIONS (2)
  - Magnetic resonance imaging abnormal [None]
  - Central nervous system lesion [None]
